FAERS Safety Report 11689195 (Version 1)
Quarter: 2015Q4

REPORT INFORMATION
  Report Type: Spontaneous
  Country: None (occurrence: None)
  Receive Date: 20151030
  Receipt Date: 20151030
  Transmission Date: 20160304
  Serious: No
  Sender: FDA-Public Use
  Company Number: None

PATIENT
  Age: 12 Year
  Sex: Female
  Weight: 44 kg

DRUGS (2)
  1. NORDITROPIN [Suspect]
     Active Substance: SOMATROPIN
     Indication: TURNER^S SYNDROME
     Dosage: 9 CLICKS, GIVEN INTO/UNDER THE SKIN
  2. GROWTH HORMONES [Concomitant]

REACTIONS (2)
  - Product quality issue [None]
  - Device issue [None]

NARRATIVE: CASE EVENT DATE: 20150613
